FAERS Safety Report 6992352-3 (Version None)
Quarter: 2010Q3

REPORT INFORMATION
  Report Type: 
  Country: None (occurrence: None)
  Receive Date: 20100917
  Receipt Date: 20100914
  Transmission Date: 20110219
  Serious: Yes (Other)
  Sender: FDA-Public Use
  Company Number: US-BAYER-201030976NA

PATIENT
  Age: 59 Year
  Sex: Female
  Weight: 70 kg

DRUGS (1)
  1. AVELOX [Suspect]
     Indication: ANTIBIOTIC THERAPY
     Dosage: PATIENT WAS GIVEN 1/2 TABLET
     Route: 048
     Dates: start: 20030221

REACTIONS (6)
  - DYSPNOEA [None]
  - ERYTHEMA [None]
  - FLUSHING [None]
  - HYPERSENSITIVITY [None]
  - PRURITUS [None]
  - SWELLING [None]
